FAERS Safety Report 8530246-2 (Version None)
Quarter: 2012Q3

REPORT INFORMATION
  Report Type: 
  Country: None (occurrence: None)
  Receive Date: 20120723
  Receipt Date: 20120713
  Transmission Date: 20120928
  Serious: Yes (Hospitalization)
  Sender: FDA-Public Use
  Company Number: SE-UCBSA-061852

PATIENT
  Age: 49 Year
  Sex: Female

DRUGS (10)
  1. ENBREL [Suspect]
     Indication: RHEUMATOID ARTHRITIS
     Dosage: UNKNOWN
     Route: 058
     Dates: start: 20120423, end: 20120515
  2. METHOTREXATE SODIUM [Suspect]
     Dosage: 20 MG PER WEEK
     Route: 048
     Dates: start: 20110503, end: 20110101
  3. METHOTREXATE SODIUM [Suspect]
     Indication: RHEUMATOID ARTHRITIS
     Dosage: 25 MG PER WEEK
     Route: 058
     Dates: start: 20110801, end: 20120515
  4. HUMIRA [Suspect]
     Indication: RHEUMATOID ARTHRITIS
     Route: 058
     Dates: start: 20120207, end: 20120402
  5. PREDNISOLONE [Concomitant]
     Dosage: UNKNOWN
  6. SPIRONOLACTONE [Concomitant]
     Dosage: UNKNOWN
  7. ENALAPRIL COMP SANDOZ [Concomitant]
     Dosage: 20 MG/12.5 MG
  8. ARAVA [Concomitant]
     Dosage: UNKNOWN
     Dates: start: 20120101
  9. CIMZIA [Suspect]
     Indication: RHEUMATOID ARTHRITIS
     Dosage: 400 MG TESTED
     Route: 058
     Dates: start: 20120112, end: 20120207
  10. ARAVA [Concomitant]
     Dosage: 10 MG PER DAY
     Dates: start: 20111001, end: 20120101

REACTIONS (2)
  - TUBULOINTERSTITIAL NEPHRITIS [None]
  - RASH [None]
